FAERS Safety Report 6739251-X (Version None)
Quarter: 2010Q2

REPORT INFORMATION
  Report Type: 
  Country: None (occurrence: None)
  Receive Date: 20100521
  Receipt Date: 20100511
  Transmission Date: 20101027
  Serious: Yes (Other)
  Sender: FDA-Public Use
  Company Number: 004213

PATIENT
  Sex: Female
  Weight: 88.9 kg

DRUGS (11)
  1. CERTOLIZUMAB PEGOL [Suspect]
     Indication: RHEUMATOID ARTHRITIS
     Dosage: (400 MG ,1X/2 WEEKS SUBCUTANEOUS)
     Route: 058
     Dates: start: 20091124, end: 20091221
  2. METHOTREXATE [Concomitant]
  3. FOLIC ACID [Concomitant]
  4. ADVAIR DISKUS 100/50 [Concomitant]
  5. PROVENTIL /00139501/ [Concomitant]
  6. ALBUTEROL [Concomitant]
  7. PRILOSEC /00661201/ [Concomitant]
  8. LISINOPRIL [Concomitant]
  9. VALTREX [Concomitant]
  10. HYDROCODONE BITARTRATE AND ACETAMINOPHEN [Concomitant]
  11. BENADRYL [Concomitant]

REACTIONS (3)
  - DYSPNOEA [None]
  - NO THERAPEUTIC RESPONSE [None]
  - URTICARIA [None]
